FAERS Safety Report 4955815-8 (Version None)
Quarter: 2006Q1

REPORT INFORMATION
  Report Type: 
  Country: None (occurrence: None)
  Receive Date: 20060323
  Receipt Date: 20060308
  Transmission Date: 20060701
  Serious: Yes (Other)
  Sender: FDA-Public Use
  Company Number: WAES 0603USA01709

PATIENT

DRUGS (3)
  1. DECADRON [Suspect]
     Indication: MULTIPLE MYELOMA
     Dosage: 40 MG/DAILY PO
     Route: 048
  2. INJ CAELYX (DOXORUBICIN HCL) [Suspect]
     Indication: MULTIPLE MYELOMA
     Dosage: 40 MG/M[2]/UNK IV
     Route: 042
  3. THALIDOMIDE [Suspect]
     Indication: MULTIPLE MYELOMA
     Dosage: 100 MG/PM

REACTIONS (1)
  - PULMONARY EMBOLISM [None]
